FAERS Safety Report 6675594-6 (Version None)
Quarter: 2010Q2

REPORT INFORMATION
  Report Type: 
  Country: None (occurrence: None)
  Receive Date: 20100409
  Receipt Date: 20100401
  Transmission Date: 20101027
  Serious: Yes (Hospitalization)
  Sender: FDA-Public Use
  Company Number: PHHY2010FR10186

PATIENT
  Sex: Female

DRUGS (14)
  1. TAREG [Suspect]
     Dosage: 160 MG, PER DAY
     Route: 048
     Dates: end: 20091207
  2. VAXIGRIP [Suspect]
     Indication: INFLUENZA
     Dosage: UNK
     Route: 058
     Dates: start: 20091015, end: 20091015
  3. ZOPICLONE [Suspect]
     Dosage: 1 DF, QD
     Route: 048
     Dates: end: 20091207
  4. HYPERIUM [Suspect]
     Dosage: 1 MG, QD
     Route: 048
     Dates: end: 20091207
  5. XANAX [Suspect]
     Dosage: 0.25 MG, QD
     Route: 048
     Dates: end: 20091207
  6. LERCAN [Suspect]
     Dosage: 20 MG, QD
     Route: 048
     Dates: end: 20091207
  7. FENOFIBRATE [Suspect]
     Dosage: 200 MG, QD
     Dates: end: 20091207
  8. ASPEGIC 1000 [Concomitant]
     Indication: THROMBOCYTOPENIC PURPURA
     Dosage: 100 MG, PER DAY
     Dates: start: 20050101, end: 20091211
  9. CORTANCYL [Concomitant]
     Indication: THROMBOCYTOPENIC PURPURA
     Dosage: 5 MG, PER DAY
     Dates: start: 20050101, end: 20091210
  10. DIFFU K [Concomitant]
     Dosage: UNK
  11. FORLAX [Concomitant]
     Dosage: UNK
  12. DOLIPRANE [Concomitant]
     Dosage: UNK
  13. FORTIMEL [Concomitant]
  14. LASIX [Concomitant]
     Dosage: UNK

REACTIONS (5)
  - AGRANULOCYTOSIS [None]
  - BONE MARROW FAILURE [None]
  - NEUTROPHIL COUNT DECREASED [None]
  - PYREXIA [None]
  - WHITE BLOOD CELL COUNT DECREASED [None]
